FAERS Safety Report 4509193-9 (Version None)
Quarter: 2004Q4

REPORT INFORMATION
  Report Type: 
  Country: None (occurrence: None)
  Receive Date: 20041123
  Receipt Date: 20030507
  Transmission Date: 20050328
  Serious: Yes (Hospitalization)
  Sender: FDA-Public Use
  Company Number: US-MERCK-0305USA01304

PATIENT
  Age: 52 Year
  Sex: Female

DRUGS (18)
  1. ZOCOR [Suspect]
     Route: 048
     Dates: start: 19960101
  2. LORTAB [Concomitant]
     Route: 065
  3. LASIX [Concomitant]
     Route: 065
  4. SERZONE [Concomitant]
     Route: 065
  5. MICRO-K [Concomitant]
     Route: 065
  6. DIOVAN [Concomitant]
     Route: 065
  7. DURAGESIC [Suspect]
     Indication: BACK PAIN
     Route: 065
  8. DURAGESIC [Suspect]
     Route: 065
  9. DURAGESIC [Suspect]
     Route: 065
  10. ANZEMET [Concomitant]
     Route: 065
  11. DILAUDID [Concomitant]
     Route: 065
  12. GEMFIBROZIL [Suspect]
     Route: 065
  13. LORAZEPAM [Concomitant]
     Route: 065
  14. TOPROL-XL [Concomitant]
     Route: 065
  15. PAXIL CR [Concomitant]
     Route: 065
  16. BEXTRA [Concomitant]
     Route: 065
  17. AMBIEN [Concomitant]
     Route: 065
  18. TRAMADOL HYDROCHLORIDE [Concomitant]
     Route: 065

REACTIONS (14)
  - ABASIA [None]
  - ABDOMINAL PAIN [None]
  - ANAEMIA [None]
  - ARTHRALGIA [None]
  - DEHYDRATION [None]
  - DRUG INTOLERANCE [None]
  - HYPOTENSION [None]
  - LETHARGY [None]
  - MENTAL DISORDER [None]
  - MENTAL STATUS CHANGES [None]
  - OVERDOSE [None]
  - PAIN [None]
  - RHABDOMYOLYSIS [None]
  - TACHYCARDIA [None]
